APPROVED DRUG PRODUCT: DISULFIRAM
Active Ingredient: DISULFIRAM
Strength: 250MG
Dosage Form/Route: TABLET;ORAL
Application: A088792 | Product #001
Applicant: STRIDES PHARMA INTERNATIONAL AG
Approved: Aug 14, 1984 | RLD: No | RS: No | Type: DISCN